FAERS Safety Report 5817572-2 (Version None)
Quarter: 2008Q3

REPORT INFORMATION
  Report Type: 
  Country: None (occurrence: None)
  Receive Date: 20080722
  Receipt Date: 20080618
  Transmission Date: 20090109
  Serious: No
  Sender: FDA-Public Use
  Company Number: US-BAYER-200713529BCC

PATIENT
  Age: 59 Year
  Sex: Male
  Weight: 91 kg

DRUGS (13)
  1. ALEVE (CAPLET) [Suspect]
     Indication: PAIN
     Dosage: TOTAL DAILY DOSE: 220 MG  UNIT DOSE: 220 MG
     Route: 048
     Dates: start: 20071004, end: 20071029
  2. ASPIRIN [Suspect]
     Indication: PROPHYLAXIS
     Dosage: TOTAL DAILY DOSE: 81 MG  UNIT DOSE: 81 MG
     Route: 048
  3. DIVALPROEX SODIUM [Concomitant]
  4. XANAX [Concomitant]
  5. FUROSEMIDE [Concomitant]
  6. GLIPIZIDE [Concomitant]
  7. POTASSIUM CHLORIDE [Concomitant]
  8. AMLODIPINE BESYLATE [Concomitant]
  9. METFORMIN HCL [Concomitant]
  10. PIROXICAM [Concomitant]
  11. TRAMADOL HCL [Concomitant]
  12. LORATADINE [Concomitant]
  13. OMEPRAZOLE [Concomitant]

REACTIONS (1)
  - THROAT IRRITATION [None]
